FAERS Safety Report 15995810 (Version 2)
Quarter: 2019Q1

REPORT INFORMATION
  Report Type: Spontaneous
  Country: CL (occurrence: CL)
  Receive Date: 20190222
  Receipt Date: 20190307
  Transmission Date: 20190418
  Serious: Yes (Life-Threatening, Other)
  Sender: FDA-Public Use
  Company Number: CL-ASTRAZENECA-2019SE28012

PATIENT
  Sex: Male

DRUGS (1)
  1. IRESSA [Suspect]
     Active Substance: GEFITINIB
     Indication: LUNG NEOPLASM MALIGNANT
     Dosage: 250.0MG UNKNOWN
     Route: 048
     Dates: start: 20171101

REACTIONS (3)
  - Malignant neoplasm progression [Unknown]
  - Metastasis [Unknown]
  - Drug ineffective [Unknown]
